FAERS Safety Report 7222637-7 (Version None)
Quarter: 2011Q1

REPORT INFORMATION
  Report Type: 
  Country: None (occurrence: None)
  Receive Date: 20110106
  Receipt Date: 20110106
  Transmission Date: 20110831
  Serious: Yes (Death, Hospitalization)
  Sender: FDA-Public Use
  Company Number: None

PATIENT
  Sex: Male
  Weight: 70.8 kg

DRUGS (1)
  1. PLAVIX [Suspect]
     Indication: PERIPHERAL VASCULAR DISORDER
     Dosage: 75 MG DAILY PO
     Route: 048
     Dates: start: 20101101, end: 20101115

REACTIONS (7)
  - DYSPNOEA EXERTIONAL [None]
  - DEEP VEIN THROMBOSIS [None]
  - CONFUSIONAL STATE [None]
  - MEMORY IMPAIRMENT [None]
  - ASTHENIA [None]
  - THROMBOTIC THROMBOCYTOPENIC PURPURA [None]
  - CHEST DISCOMFORT [None]
